FAERS Safety Report 5408300-3 (Version None)
Quarter: 2007Q3

REPORT INFORMATION
  Report Type: 
  Country: None (occurrence: None)
  Receive Date: 20070808
  Receipt Date: 20070731
  Transmission Date: 20080115
  Serious: No
  Sender: FDA-Public Use
  Company Number: US-BAXTER-2007BH005607

PATIENT
  Age: 57 Year
  Sex: Male

DRUGS (19)
  1. DOPAMINE HCL IN 5% DEXTROSE [Suspect]
     Indication: HYPOTENSION
     Route: 042
     Dates: start: 20070601
  2. DOPAMINE HCL IN 5% DEXTROSE [Suspect]
     Indication: CARDIAC OUTPUT
     Route: 042
     Dates: start: 20070601
  3. DOPAMINE HCL IN 5% DEXTROSE [Suspect]
     Indication: VASCULAR RESISTANCE SYSTEMIC
     Route: 042
     Dates: start: 20070601
  4. DOPAMINE HCL IN 5% DEXTROSE [Suspect]
     Indication: CARDIAC OPERATION
     Route: 042
     Dates: start: 20070601
  5. SODIUM CHLORIDE 0.9% IN PLASTIC CONTAINER [Suspect]
     Indication: HYPOTENSION
     Route: 042
     Dates: start: 20070601
  6. SODIUM CHLORIDE 0.9% IN PLASTIC CONTAINER [Suspect]
     Indication: CARDIAC OUTPUT
     Route: 042
     Dates: start: 20070601
  7. SODIUM CHLORIDE 0.9% IN PLASTIC CONTAINER [Suspect]
     Indication: VASCULAR RESISTANCE SYSTEMIC
     Route: 042
     Dates: start: 20070601
  8. SODIUM CHLORIDE 0.9% IN PLASTIC CONTAINER [Suspect]
     Indication: CARDIAC OPERATION
     Route: 042
     Dates: start: 20070601
  9. INSULIN [Suspect]
     Indication: DIABETES MELLITUS
     Route: 042
     Dates: start: 20070601
  10. COUMADIN [Concomitant]
     Indication: DRUG USE FOR UNKNOWN INDICATION
     Route: 065
  11. METFORMIN HCL [Concomitant]
     Indication: DRUG USE FOR UNKNOWN INDICATION
     Route: 065
  12. PLAVIX [Concomitant]
     Indication: DRUG USE FOR UNKNOWN INDICATION
     Route: 065
  13. SPIRONOLACTONE [Concomitant]
     Indication: DRUG USE FOR UNKNOWN INDICATION
     Route: 065
  14. LIPITOR [Concomitant]
     Indication: DRUG USE FOR UNKNOWN INDICATION
     Route: 065
  15. LASIX [Concomitant]
     Indication: DRUG USE FOR UNKNOWN INDICATION
     Route: 065
  16. COREG [Concomitant]
     Indication: DRUG USE FOR UNKNOWN INDICATION
     Route: 065
  17. WELLBUTRIN [Concomitant]
     Indication: DRUG USE FOR UNKNOWN INDICATION
     Route: 065
  18. CORDARONE [Concomitant]
     Indication: DRUG USE FOR UNKNOWN INDICATION
     Route: 065
  19. LISINOPRIL [Concomitant]
     Indication: DRUG USE FOR UNKNOWN INDICATION
     Route: 065

REACTIONS (4)
  - BLOOD PRESSURE DECREASED [None]
  - DEVICE FAILURE [None]
  - INCORRECT DOSE ADMINISTERED [None]
  - MEDICATION ERROR [None]
